FAERS Safety Report 7429531-7 (Version None)
Quarter: 2011Q2

REPORT INFORMATION
  Report Type: 
  Country: None (occurrence: None)
  Receive Date: 20110421
  Receipt Date: 20110419
  Transmission Date: 20111010
  Serious: Yes (Hospitalization)
  Sender: FDA-Public Use
  Company Number: A0897060A

PATIENT
  Age: 60 Year
  Sex: Female

DRUGS (2)
  1. AVANDAMET [Suspect]
     Route: 048
     Dates: start: 20070301, end: 20070401
  2. AVANDIA [Suspect]
     Dosage: 4MG UNKNOWN
     Route: 048
     Dates: end: 20070601

REACTIONS (1)
  - MYOCARDIAL INFARCTION [None]
